FAERS Safety Report 6575205-4 (Version None)
Quarter: 2010Q1

REPORT INFORMATION
  Report Type: 
  Country: None (occurrence: None)
  Receive Date: 20100202
  Receipt Date: 20100121
  Transmission Date: 20100710
  Serious: Yes (Other)
  Sender: FDA-Public Use
  Company Number: 2010AC000080

PATIENT

DRUGS (1)
  1. DIGOXIN [Suspect]

REACTIONS (11)
  - ANHEDONIA [None]
  - ANXIETY [None]
  - COLD SWEAT [None]
  - HEART RATE IRREGULAR [None]
  - INJURY [None]
  - IRRITABILITY [None]
  - PAIN [None]
  - PALPITATIONS [None]
  - QUALITY OF LIFE DECREASED [None]
  - THERAPEUTIC AGENT TOXICITY [None]
  - VISUAL IMPAIRMENT [None]
